FAERS Safety Report 8096401-3 (Version None)
Quarter: 2012Q1

REPORT INFORMATION
  Report Type: 
  Country: None (occurrence: None)
  Receive Date: 20120129
  Receipt Date: 20111209
  Transmission Date: 20120608
  Serious: No
  Sender: FDA-Public Use
  Company Number: US-ABBOTT-11P-163-0882936-00

PATIENT
  Sex: Male
  Weight: 104.42 kg

DRUGS (2)
  1. LEFLUNOMIDE [Concomitant]
     Indication: RHEUMATOID ARTHRITIS
  2. HUMIRA [Suspect]
     Indication: RHEUMATOID ARTHRITIS
     Dates: start: 20050101

REACTIONS (3)
  - OROPHARYNGEAL PAIN [None]
  - ILL-DEFINED DISORDER [None]
  - COUGH [None]
